FAERS Safety Report 5446242-8 (Version None)
Quarter: 2007Q3

REPORT INFORMATION
  Report Type: 
  Country: None (occurrence: None)
  Receive Date: 20070731
  Receipt Date: 20070426
  Transmission Date: 20080115
  Serious: Yes (Other)
  Sender: FDA-Public Use
  Company Number: US-2007-010920

PATIENT
  Age: 11 Year
  Sex: Male
  Weight: 80 kg

DRUGS (2)
  1. MAGNEVIST [Suspect]
     Indication: NUCLEAR MAGNETIC RESONANCE IMAGING BRAIN
     Dosage: 8 ML, 1 DOSE, INTRAVENOUS
     Route: 042
     Dates: start: 20070307, end: 20070307
  2. ANTIALLERGIC AGENTS, EXLC CORTICOSTEROIDS [Concomitant]

REACTIONS (9)
  - CHOKING SENSATION [None]
  - DIZZINESS [None]
  - FEELING ABNORMAL [None]
  - FEELING HOT [None]
  - HYPERHIDROSIS [None]
  - NAUSEA [None]
  - OCULAR HYPERAEMIA [None]
  - TACHYCARDIA [None]
  - VOMITING [None]
